FAERS Safety Report 14862889 (Version 1)
Quarter: 2018Q2

REPORT INFORMATION
  Report Type: Spontaneous
  Country: US (occurrence: US)
  Receive Date: 20180422
  Receipt Date: 20180422
  Transmission Date: 20180711
  Serious: Yes (Other)
  Sender: FDA-Public Use
  Company Number: None

PATIENT
  Age: 56 Year
  Sex: Female
  Weight: 52.16 kg

DRUGS (20)
  1. ASPIRIN. [Concomitant]
     Active Substance: ASPIRIN
  2. VITAMIN D3 [Concomitant]
     Active Substance: CHOLECALCIFEROL
  3. EPA [Concomitant]
  4. HUPERAZINE A [Concomitant]
  5. ADDERALL XR [Suspect]
     Active Substance: AMPHETAMINE ASPARTATE\AMPHETAMINE SULFATE\DEXTROAMPHETAMINE SACCHARATE\DEXTROAMPHETAMINE SULFATE
     Indication: ATTENTION DEFICIT/HYPERACTIVITY DISORDER
     Dates: start: 201408, end: 20180223
  6. ADDERALL XR [Suspect]
     Active Substance: AMPHETAMINE ASPARTATE\AMPHETAMINE SULFATE\DEXTROAMPHETAMINE SACCHARATE\DEXTROAMPHETAMINE SULFATE
     Indication: APRAXIA
     Dates: start: 201408, end: 20180223
  7. VIT K2 [Concomitant]
  8. IBUPROFEN. [Concomitant]
     Active Substance: IBUPROFEN
  9. MULTIVITAMIN [Concomitant]
     Active Substance: VITAMINS
  10. FISH OIL [Concomitant]
     Active Substance: FISH OIL
  11. FLEETER PATCH [Concomitant]
  12. METAXALONE. [Concomitant]
     Active Substance: METAXALONE
  13. TUMARIC CURCUMIN [Concomitant]
  14. CA CHEW [Concomitant]
  15. DIVIGEL [Concomitant]
     Active Substance: ESTRADIOL
  16. DHA [Concomitant]
     Active Substance: DIETARY SUPPLEMENT
  17. PROGESTERONE. [Concomitant]
     Active Substance: PROGESTERONE
  18. ESZOPICOLONE [Concomitant]
  19. OXYCODONE [Concomitant]
     Active Substance: OXYCODONE
  20. FLONASE [Concomitant]
     Active Substance: FLUTICASONE PROPIONATE

REACTIONS (9)
  - Neuralgia [None]
  - Drug effect decreased [None]
  - Spinal pain [None]
  - Therapy change [None]
  - Dysgeusia [None]
  - Pain [None]
  - Depressed mood [None]
  - Dry mouth [None]
  - Drug dose omission [None]

NARRATIVE: CASE EVENT DATE: 20180128
